FAERS Safety Report 7572560-3 (Version None)
Quarter: 2011Q2

REPORT INFORMATION
  Report Type: 
  Country: None (occurrence: None)
  Receive Date: 20110627
  Receipt Date: 20110617
  Transmission Date: 20111010
  Serious: No
  Sender: FDA-Public Use
  Company Number: US-BIOGENIDEC-2011BI001773

PATIENT
  Age: 66 Year
  Sex: Male

DRUGS (2)
  1. AVONEX [Concomitant]
     Indication: MULTIPLE SCLEROSIS
     Route: 030
  2. TYSABRI [Suspect]
     Indication: MULTIPLE SCLEROSIS
     Route: 042
     Dates: start: 20090113

REACTIONS (4)
  - RASH ERYTHEMATOUS [None]
  - INFLUENZA [None]
  - FEELING HOT [None]
  - PHARYNGITIS STREPTOCOCCAL [None]
